FAERS Safety Report 9597081 (Version 1)
Quarter: 2013Q4

REPORT INFORMATION
  Report Type: Spontaneous
  Country: US (occurrence: US)
  Receive Date: 20131004
  Receipt Date: 20131004
  Transmission Date: 20140711
  Serious: Yes (Hospitalization)
  Sender: FDA-Public Use
  Company Number: US-ABBVIE-13P-163-1152549-00

PATIENT
  Sex: Female
  Weight: 59.02 kg

DRUGS (3)
  1. SYNTHROID [Suspect]
     Indication: HYPOTHYROIDISM
     Dates: start: 2013
  2. SYNTHROID [Suspect]
     Indication: HYPOTHYROIDISM
     Dates: end: 2013
  3. UNKNOWN SLEEPING PILL [Suspect]
     Indication: INSOMNIA
     Dates: start: 2012

REACTIONS (5)
  - Loss of consciousness [Recovered/Resolved]
  - Rib fracture [Recovered/Resolved]
  - Blood thyroid stimulating hormone increased [Not Recovered/Not Resolved]
  - Insomnia [Recovered/Resolved]
  - Nausea [Not Recovered/Not Resolved]
